FAERS Safety Report 8973717 (Version 1)
Quarter: 2012Q4

REPORT INFORMATION
  Report Type: 
  Country: CN (occurrence: CN)
  Receive Date: 20121218
  Receipt Date: 20121218
  Transmission Date: 20130627
  Serious: Yes (Death)
  Sender: FDA-Public Use
  Company Number: PHHY2012CN115954

PATIENT
  Sex: Male

DRUGS (1)
  1. SEBIVO [Suspect]
     Indication: CHRONIC HEPATITIS B
     Dosage: 600 mg, UNK
     Route: 048
     Dates: start: 20090915, end: 20100213

REACTIONS (2)
  - Lactic acidosis [Fatal]
  - Blood creatine phosphokinase increased [Fatal]
